FAERS Safety Report 4505432-9 (Version None)
Quarter: 2004Q4

REPORT INFORMATION
  Report Type: 
  Country: None (occurrence: None)
  Receive Date: 20041116
  Receipt Date: 20041104
  Transmission Date: 20050328
  Serious: Yes (Hospitalization)
  Sender: FDA-Public Use
  Company Number: STA-AE-04-MTX-544

PATIENT
  Age: 70 Year
  Sex: Female

DRUGS (3)
  1. RHEUMATREX [Suspect]
     Indication: RHEUMATOID ARTHRITIS
     Dosage: 6 MG 1X PER 1 WK, ORAL
     Route: 048
     Dates: start: 20020101
  2. MINOCIN [Concomitant]
  3. BAKTAR (SULFAMETHOXAZOL/TRIMETHOPRIM) [Concomitant]

REACTIONS (1)
  - BONE MARROW DEPRESSION [None]
